FAERS Safety Report 9113036 (Version 1)
Quarter: 2013Q1

REPORT INFORMATION
  Report Type: Spontaneous
  Country: US (occurrence: US)
  Receive Date: 20130201
  Receipt Date: 20130201
  Transmission Date: 20140127
  Serious: No
  Sender: FDA-Public Use
  Company Number: US-009507513-1301USA013293

PATIENT
  Sex: Female

DRUGS (2)
  1. NUVARING [Suspect]
     Indication: MENSTRUATION NORMAL
     Dosage: ONE RING FOR 3 WEEKS
     Route: 067
     Dates: start: 20130128
  2. NUVARING [Suspect]
     Indication: ALOPECIA

REACTIONS (2)
  - Alopecia [Unknown]
  - Inappropriate schedule of drug administration [Unknown]
